FAERS Safety Report 9281344 (Version 1)
Quarter: 2013Q2

REPORT INFORMATION
  Report Type: Report from Study
  Country: PH (occurrence: PH)
  Receive Date: 20130509
  Receipt Date: 20130509
  Transmission Date: 20140414
  Serious: Yes (Death, Hospitalization)
  Sender: FDA-Public Use
  Company Number: PH-PFIZER INC-2012317815

PATIENT
  Age: 37 Year
  Sex: Male
  Weight: 39.46 kg

DRUGS (3)
  1. AXITINIB [Suspect]
     Indication: RENAL CANCER METASTATIC
     Dosage: 5 MG, 2X/DAY
     Route: 048
     Dates: start: 20110401
  2. BUMETANIDE [Concomitant]
     Indication: OEDEMA PERIPHERAL
     Dosage: UNK
     Route: 048
     Dates: start: 20121109
  3. ARCOXIA [Concomitant]
     Indication: ARTHRALGIA
     Dosage: UNK
     Dates: start: 20121029

REACTIONS (2)
  - Death [Fatal]
  - Haematemesis [Unknown]
